FAERS Safety Report 9619142 (Version 1)
Quarter: 2013Q4

REPORT INFORMATION
  Report Type: Spontaneous
  Country: US (occurrence: US)
  Receive Date: 20131014
  Receipt Date: 20131014
  Transmission Date: 20140711
  Serious: Yes (Other)
  Sender: FDA-Public Use
  Company Number: US-PFIZER INC-2013293793

PATIENT
  Sex: Female

DRUGS (5)
  1. LYRICA [Suspect]
     Indication: INTERVERTEBRAL DISC PROTRUSION
     Dosage: 75 MG, 3X/DAY
  2. LYRICA [Suspect]
     Indication: HYPOAESTHESIA
     Dosage: 200 MG, 3X/DAY
  3. LYRICA [Suspect]
     Indication: NECK PAIN
  4. LYRICA [Suspect]
     Indication: FIBROMYALGIA
  5. KEPPRA [Suspect]
     Indication: GRAND MAL CONVULSION
     Dosage: UNK

REACTIONS (3)
  - Off label use [Unknown]
  - Grand mal convulsion [Recovered/Resolved]
  - Partial seizures [Recovered/Resolved]
